FAERS Safety Report 6124513-X (Version None)
Quarter: 2009Q1

REPORT INFORMATION
  Report Type: 
  Country: None (occurrence: None)
  Receive Date: 20090317
  Receipt Date: 20090317
  Transmission Date: 20090719
  Serious: Yes (Disabling, Other)
  Sender: FDA-Public Use
  Company Number: None

PATIENT
  Age: 56 Year
  Sex: Male
  Weight: 96.6162 kg

DRUGS (1)
  1. PROPYLENE GLYCOL [Suspect]

REACTIONS (6)
  - BLOOD URINE PRESENT [None]
  - DERMATITIS [None]
  - FEELING OF BODY TEMPERATURE CHANGE [None]
  - GINGIVAL INFECTION [None]
  - IMMUNOSUPPRESSION [None]
  - SOLVENT SENSITIVITY [None]
